FAERS Safety Report 8547022-7 (Version None)
Quarter: 2012Q3

REPORT INFORMATION
  Report Type: 
  Country: None (occurrence: None)
  Receive Date: 20120727
  Receipt Date: 20120312
  Transmission Date: 20120928
  Serious: No
  Sender: FDA-Public Use
  Company Number: US-ASTRAZENECA-2012SE16734

PATIENT
  Age: 62 Year
  Sex: Male

DRUGS (9)
  1. VIT C [Concomitant]
  2. METOPROLOL TARTRATE [Concomitant]
     Indication: HYPERTENSION
  3. ASPIRIN [Concomitant]
  4. VITAMIN D [Concomitant]
  5. GABAPENTIN [Concomitant]
     Indication: NEURALGIA
  6. SEROQUEL [Suspect]
     Indication: PSYCHOTIC DISORDER
     Route: 048
     Dates: start: 20020101
  7. AMLODIPINE [Concomitant]
     Indication: HYPERTENSION
  8. CARBAMAZEPINE [Concomitant]
  9. TAMSULOSIN HCL [Concomitant]

REACTIONS (2)
  - NOCTURIA [None]
  - PAIN IN EXTREMITY [None]
